FAERS Safety Report 14668882 (Version 1)
Quarter: 2018Q1

REPORT INFORMATION
  Report Type: Report from Study
  Country: US (occurrence: US)
  Receive Date: 20180322
  Receipt Date: 20180322
  Transmission Date: 20180509
  Serious: Yes (Death)
  Sender: FDA-Public Use
  Company Number: US-ACTELION-A-NJ2018-169259

PATIENT
  Age: 4 Year
  Sex: Female

DRUGS (3)
  1. POLY-VI-SOL [Concomitant]
     Active Substance: VITAMINS
     Dosage: UNK, QD
     Route: 049
     Dates: start: 20150921
  2. ZAVESCA [Suspect]
     Active Substance: MIGLUSTAT
     Indication: PRODUCT USED FOR UNKNOWN INDICATION
     Dosage: 100 MG, TID
     Route: 048
     Dates: start: 20150921
  3. SENNA-S [Concomitant]
     Active Substance: DOCUSATE SODIUM\SENNOSIDES
     Dosage: 2 TABLETS, QPM
     Route: 049
     Dates: start: 20150921

REACTIONS (1)
  - Death [Fatal]
